FAERS Safety Report 4630988-5 (Version None)
Quarter: 2005Q2

REPORT INFORMATION
  Report Type: 
  Country: None (occurrence: None)
  Receive Date: 20050406
  Receipt Date: 20050406
  Transmission Date: 20051028
  Serious: Yes (Hospitalization)
  Sender: FDA-Public Use
  Company Number: None

PATIENT
  Age: 78 Year
  Sex: Male
  Weight: 88.4514 kg

DRUGS (2)
  1. CAMPTOSAR     50MG/M2 [Suspect]
     Indication: OESOPHAGEAL CARCINOMA
     Dates: start: 20050314, end: 20050328
  2. TAXOTERE [Suspect]
     Indication: OESOPHAGEAL CARCINOMA
     Dates: start: 20050314, end: 20050328

REACTIONS (2)
  - ABDOMINAL PAIN [None]
  - DIARRHOEA [None]
